FAERS Safety Report 12661251 (Version 1)
Quarter: 2016Q3

REPORT INFORMATION
  Report Type: Spontaneous
  Country: US (occurrence: US)
  Receive Date: 20160817
  Receipt Date: 20160817
  Transmission Date: 20161109
  Serious: No
  Sender: FDA-Public Use
  Company Number: US-ELI_LILLY_AND_COMPANY-US201608007611

PATIENT
  Sex: Male

DRUGS (3)
  1. TRADJENTA [Concomitant]
     Active Substance: LINAGLIPTIN
     Dosage: UNK, UNKNOWN
     Route: 065
  2. HUMULIN R [Suspect]
     Active Substance: INSULIN HUMAN
     Indication: TYPE 2 DIABETES MELLITUS
     Dosage: 50 U, EACH MORNING
     Route: 065
     Dates: start: 201508
  3. HUMULIN R [Suspect]
     Active Substance: INSULIN HUMAN
     Dosage: 60 U, EACH EVENING
     Route: 065
     Dates: start: 201508

REACTIONS (2)
  - Blood glucose decreased [Recovered/Resolved]
  - Underdose [Unknown]
